FAERS Safety Report 6874574-5 (Version None)
Quarter: 2010Q2

REPORT INFORMATION
  Report Type: 
  Country: None (occurrence: None)
  Receive Date: 20100609
  Receipt Date: 20090716
  Transmission Date: 20101027
  Serious: No
  Sender: FDA-Public Use
  Company Number: 2009-00508

PATIENT
  Age: 27 Year
  Sex: Female
  Weight: 99.7913 kg

DRUGS (4)
  1. ZICAM EXTREME CONGESTION NASAL GEL [Suspect]
     Dosage: BID X 7 MONTHS
     Dates: start: 20081001
  2. SINGULAIR [Concomitant]
  3. ADVAIR DISKUS 100/50 [Concomitant]
  4. LORATADINE [Concomitant]

REACTIONS (1)
  - ANOSMIA [None]
